FAERS Safety Report 9555249 (Version 1)
Quarter: 2013Q3

REPORT INFORMATION
  Report Type: Spontaneous
  Country: US (occurrence: None)
  Receive Date: 20130801
  Receipt Date: 20130801
  Transmission Date: 20140515
  Serious: Yes (Death, Other)
  Sender: FDA-Public Use
  Company Number: OPER20130012

PATIENT
  Sex: Male

DRUGS (1)
  1. OPANA ER [Suspect]
     Indication: DRUG ABUSE
     Route: 048
     Dates: start: 201107

REACTIONS (4)
  - Toxicity to various agents [None]
  - Respiratory depression [None]
  - Accidental overdose [None]
  - Drug abuse [None]
